FAERS Safety Report 14594507 (Version 1)
Quarter: 2018Q1

REPORT INFORMATION
  Report Type: Spontaneous
  Country: CA (occurrence: CA)
  Receive Date: 20180302
  Receipt Date: 20180302
  Transmission Date: 20180509
  Serious: Yes (Hospitalization)
  Sender: FDA-Public Use
  Company Number: CA-TEVA-2018-CA-863837

PATIENT
  Age: 87 Year
  Sex: Female

DRUGS (3)
  1. PLAVIX [Concomitant]
     Active Substance: CLOPIDOGREL BISULFATE
  2. CIPROFLOXACIN INTRAVENOUS INFUSION BP [Suspect]
     Active Substance: CIPROFLOXACIN
     Indication: BACTERIURIA
     Dosage: 800 MILLIGRAM DAILY; SOLUTION INTRAVENOUS
     Route: 042
  3. CEFAZOLIN [Concomitant]
     Active Substance: CEFAZOLIN

REACTIONS (4)
  - Oedema peripheral [Recovered/Resolved]
  - Arthralgia [Recovered/Resolved]
  - Walking disability [Recovered/Resolved]
  - Erythema [Recovered/Resolved]
